FAERS Safety Report 14896876 (Version 1)
Quarter: 2018Q2

REPORT INFORMATION
  Report Type: Spontaneous
  Country: US (occurrence: US)
  Receive Date: 20180426
  Receipt Date: 20180426
  Transmission Date: 20180711
  Serious: No
  Sender: FDA-Public Use
  Company Number: None

PATIENT
  Age: 65 Year
  Sex: Male

DRUGS (1)
  1. LIDOCAINE. [Suspect]
     Active Substance: LIDOCAINE
     Indication: PAIN
     Dosage: 1 PATCH MG EVERY DAY TOP
     Route: 061
     Dates: start: 20170620, end: 20170722

REACTIONS (2)
  - Product adhesion issue [None]
  - Drug ineffective [None]

NARRATIVE: CASE EVENT DATE: 20170721
